FAERS Safety Report 11482861 (Version 6)
Quarter: 2017Q4

REPORT INFORMATION
  Report Type: Spontaneous
  Country: CA (occurrence: CA)
  Receive Date: 20150909
  Receipt Date: 20171218
  Transmission Date: 20180320
  Serious: Yes (Other)
  Sender: FDA-Public Use
  Company Number: CA-JAZZ-2015-CA-003014

PATIENT
  Sex: Female

DRUGS (2)
  1. XYREM [Suspect]
     Active Substance: SODIUM OXYBATE
     Indication: CATAPLEXY
     Dosage: UNKNOWN DOSE TWICE DAILY
     Route: 048
  2. XYREM [Suspect]
     Active Substance: SODIUM OXYBATE
     Dosage: 3.75 G, BID
     Route: 048
     Dates: start: 20070904

REACTIONS (9)
  - Confusional state [Not Recovered/Not Resolved]
  - Loss of consciousness [Unknown]
  - Influenza [Unknown]
  - Stress [Not Recovered/Not Resolved]
  - Diarrhoea [Unknown]
  - Wrong technique in product usage process [Unknown]
  - Vomiting [Unknown]
  - Memory impairment [Not Recovered/Not Resolved]
  - Hip fracture [Unknown]
